FAERS Safety Report 4342686-6 (Version None)
Quarter: 2004Q1

REPORT INFORMATION
  Report Type: 
  Country: None (occurrence: None)
  Receive Date: 20040329
  Receipt Date: 20040114
  Transmission Date: 20041129
  Serious: No
  Sender: FDA-Public Use
  Company Number: USA031152857

PATIENT
  Age: 24 Year
  Sex: Female
  Weight: 55 kg

DRUGS (2)
  1. STRATTERA [Suspect]
     Indication: ANXIETY DISORDER
     Dosage: 40 MG/DAY
     Dates: start: 20030724, end: 20030724
  2. STRATTERA [Suspect]
     Indication: ATTENTION DEFICIT/HYPERACTIVITY DISORDER
     Dosage: 40 MG/DAY
     Dates: start: 20030724, end: 20030724

REACTIONS (4)
  - DISORIENTATION [None]
  - DIZZINESS [None]
  - HALLUCINATION [None]
  - VISION BLURRED [None]
